FAERS Safety Report 8582363-9 (Version None)
Quarter: 2012Q3

REPORT INFORMATION
  Report Type: 
  Country: None (occurrence: None)
  Receive Date: 20120809
  Receipt Date: 20120730
  Transmission Date: 20120928
  Serious: Yes (Hospitalization)
  Sender: FDA-Public Use
  Company Number: US-GLAXOSMITHKLINE-A0771657A

PATIENT
  Age: 54 Year
  Sex: Female
  Weight: 93.2 kg

DRUGS (7)
  1. AVANDIA [Suspect]
     Indication: DIABETES MELLITUS
     Dosage: 8MG PER DAY
     Route: 048
     Dates: start: 20020225, end: 20050101
  2. TOPROL-XL [Concomitant]
  3. CENTRUM [Concomitant]
  4. ZOCOR [Concomitant]
  5. CRESTOR [Concomitant]
  6. LANTUS [Concomitant]
  7. LIPITOR [Concomitant]

REACTIONS (2)
  - CARDIAC FAILURE CONGESTIVE [None]
  - MYOCARDIAL INFARCTION [None]
